FAERS Safety Report 19771722 (Version 2)
Quarter: 2022Q3

REPORT INFORMATION
  Report Type: Report from Study
  Country: CA (occurrence: CA)
  Receive Date: 20210831
  Receipt Date: 20220926
  Transmission Date: 20221027
  Serious: Yes (Death)
  Sender: FDA-Public Use
  Company Number: CA-MYLANLABS-2021M1057165

PATIENT
  Sex: Male
  Weight: 86.6 kg

DRUGS (1)
  1. OGIVRI [Suspect]
     Active Substance: TRASTUZUMAB-DKST
     Indication: Metastatic gastric cancer
     Dosage: UNK
     Route: 065
     Dates: start: 20200925

REACTIONS (1)
  - Death [Fatal]
